FAERS Safety Report 7337807-7 (Version None)
Quarter: 2011Q1

REPORT INFORMATION
  Report Type: 
  Country: None (occurrence: None)
  Receive Date: 20110308
  Receipt Date: 20110224
  Transmission Date: 20110831
  Serious: Yes (Other)
  Sender: FDA-Public Use
  Company Number: US-JNJFOC-20110208559

PATIENT
  Age: 13 Year
  Sex: Female

DRUGS (3)
  1. TYLENOL [Concomitant]
     Indication: PREMEDICATION
     Route: 065
  2. BENADRYL [Concomitant]
     Indication: PREMEDICATION
     Route: 065
  3. REMICADE [Suspect]
     Indication: DERMATOMYOSITIS
     Route: 042

REACTIONS (2)
  - DYSPNOEA [None]
  - INFUSION RELATED REACTION [None]
